FAERS Safety Report 8013854-7 (Version None)
Quarter: 2011Q4

REPORT INFORMATION
  Report Type: 
  Country: None (occurrence: None)
  Receive Date: 20111223
  Receipt Date: 20111209
  Transmission Date: 20120403
  Serious: Yes (Hospitalization)
  Sender: FDA-Public Use
  Company Number: 1000026488

PATIENT
  Age: 70 Year
  Sex: Female

DRUGS (20)
  1. SINGULAIR [Concomitant]
  2. ATROVENT (IPRATROPIUM BROMIDE) (IPRATROPIUM BROMIDE) [Concomitant]
  3. SYMBICORT (BUDESONIDE, FORMOTEROL FUMARATE) (POWDER) (BUDESONIDE, FORM [Concomitant]
  4. OMEPRAZOLE [Concomitant]
  5. SIMVASTATIN [Concomitant]
  6. VENTOLINE (SALBUTAMOL) (SALBUTAMOL) [Concomitant]
  7. AMLODIPINE [Concomitant]
  8. FOLACIN (FOLACIN) (FOLACIN) [Concomitant]
  9. IMPUGAN (FUROSEMIDE) (FUROSEMIDE) [Concomitant]
  10. OXASCAND (OXAZEPAM) (OXAZEPAM) [Concomitant]
  11. ROFLUMILAST (ROFLUMILAST) (500 MICROGRAM, TABLETS) [Suspect]
     Indication: RESPIRATORY DISORDER
     Dosage: (500 MCG)
     Dates: end: 20111001
  12. (TIOTROPIUM BROMIDE) (TIOTROPIUM BROMIDE) [Concomitant]
  13. CETIRIZINE (CETIRIZINE) (CETIRIZINE) [Concomitant]
  14. ALENDRONATE (ALENDRONATE SODIUM) (ALENDRONATE SODIUM) [Concomitant]
  15. PANODIL (PARACETAMOL (PARACETAMOL) [Concomitant]
  16. NITROLINGUAL (GLYCERYL TRINITRATE) (GLYCERYL TRINITRATE) [Concomitant]
  17. TROMBYL (ACETYLSALICYLIC ACID) (ACETYLSALICYLIC ACID) [Concomitant]
  18. ACETYLCYSTEINE (ACETYLCYTEINE) (ACETYLCYSTEINE) [Concomitant]
  19. BRICANYL  TURBUHALER (TERBUTALINE SULFATE) (TERBUTALINE SULFATE) [Concomitant]
  20. METHOTREXAT (METHOTREXATE) (METHOTREXATE) [Concomitant]

REACTIONS (3)
  - OFF LABEL USE [None]
  - NAUSEA [None]
  - ORTHOSTATIC HYPOTENSION [None]
